FAERS Safety Report 13734613 (Version 1)
Quarter: 2017Q3

REPORT INFORMATION
  Report Type: Spontaneous
  Country: US (occurrence: US)
  Receive Date: 20170707
  Receipt Date: 20170707
  Transmission Date: 20171127
  Serious: No
  Sender: FDA-Public Use
  Company Number: None

PATIENT
  Age: 29 Year
  Sex: Male
  Weight: 103 kg

DRUGS (1)
  1. NALTREXONE [Suspect]
     Active Substance: NALTREXONE
     Indication: ALCOHOLISM
     Dosage: FREQUENCY - OTHER
     Route: 030
     Dates: start: 20161026, end: 20161125

REACTIONS (4)
  - Injection site cellulitis [None]
  - Injection site discomfort [None]
  - Cellulitis [None]
  - Abscess [None]

NARRATIVE: CASE EVENT DATE: 20161125
